FAERS Safety Report 12573435 (Version 1)
Quarter: 2016Q3

REPORT INFORMATION
  Report Type: Spontaneous
  Country: US (occurrence: None)
  Receive Date: 20160719
  Receipt Date: 20160719
  Transmission Date: 20161109
  Serious: No
  Sender: FDA-Public Use
  Company Number: None

PATIENT
  Age: 39 Year
  Sex: Female

DRUGS (1)
  1. GILENYA [Suspect]
     Active Substance: FINGOLIMOD HYDROCHLORIDE
     Indication: MULTIPLE SCLEROSIS
     Route: 048
     Dates: start: 20150209

REACTIONS (5)
  - Anxiety [None]
  - Memory impairment [None]
  - Tremor [None]
  - Drug dose omission [None]
  - Mood altered [None]

NARRATIVE: CASE EVENT DATE: 20160624
